FAERS Safety Report 24021473 (Version 1)
Quarter: 2024Q2

REPORT INFORMATION
  Report Type: Report from Study
  Country: CN (occurrence: CN)
  Receive Date: 20240627
  Receipt Date: 20240627
  Transmission Date: 20240716
  Serious: No
  Sender: FDA-Public Use
  Company Number: CN-ROCHE-3566071

PATIENT
  Age: 37 Year
  Sex: Male

DRUGS (7)
  1. COLUMVI [Suspect]
     Active Substance: GLOFITAMAB-GXBM
     Indication: Diffuse large B-cell lymphoma
     Dosage: UNKNOWN DOSE
     Route: 042
     Dates: start: 20240407
  2. COLUMVI [Suspect]
     Active Substance: GLOFITAMAB-GXBM
     Route: 042
     Dates: start: 20240417
  3. COLUMVI [Suspect]
     Active Substance: GLOFITAMAB-GXBM
     Dosage: UNKNOWN FREQUENCY
     Route: 042
     Dates: start: 20240428
  4. COLUMVI [Suspect]
     Active Substance: GLOFITAMAB-GXBM
     Dosage: UNKNOWN FREQUENCY
     Route: 042
     Dates: start: 20240506
  5. POLIVY [Suspect]
     Active Substance: POLATUZUMAB VEDOTIN-PIIQ
     Indication: Diffuse large B-cell lymphoma
     Route: 042
     Dates: start: 20240407
  6. OBINUTUZUMAB [Suspect]
     Active Substance: OBINUTUZUMAB
     Indication: Diffuse large B-cell lymphoma
     Dosage: PRECONDITIONING
     Route: 042
  7. TISLELIZUMAB [Concomitant]
     Active Substance: TISLELIZUMAB
     Indication: Diffuse large B-cell lymphoma
     Route: 042
     Dates: start: 20240407

REACTIONS (14)
  - Lymphadenopathy [Unknown]
  - Metabolic disorder [Unknown]
  - Disease progression [Unknown]
  - Sinusitis [Unknown]
  - Pleural effusion [Unknown]
  - Renal cyst [Unknown]
  - Pyrexia [Recovering/Resolving]
  - Pneumonitis [Recovering/Resolving]
  - Diarrhoea [Unknown]
  - Gastrointestinal infection [Unknown]
  - Hepatic function abnormal [Unknown]
  - Hypoproteinaemia [Unknown]
  - Anaemia [Unknown]
  - Cancer pain [Unknown]

NARRATIVE: CASE EVENT DATE: 20240409
